FAERS Safety Report 4398037-4 (Version None)
Quarter: 2004Q3

REPORT INFORMATION
  Report Type: 
  Country: None (occurrence: None)
  Receive Date: 20040713
  Receipt Date: 20040702
  Transmission Date: 20050211
  Serious: Yes (Hospitalization)
  Sender: FDA-Public Use
  Company Number: ZONI001459

PATIENT
  Age: 14 Year
  Sex: Male

DRUGS (4)
  1. EXCEGRAN (ZONISAMIDE) [Suspect]
     Indication: EPILEPSY
     Dosage: 150 MG DAILY ORAL
     Route: 048
  2. PHENYTOIN [Suspect]
     Indication: EPILEPSY
     Dosage: 231 MG DAILY
  3. MYSTAN (CLOBAZAM) [Concomitant]
     Indication: EPILEPSY
     Dosage: 12 MG DAILY
     Dates: start: 20001113
  4. CLORAZEPATE DIPOTASSIUM [Suspect]
     Indication: EPILEPSY
     Dosage: 30 MG DAILY
     Dates: start: 20010831

REACTIONS (1)
  - ACUTE PROMYELOCYTIC LEUKAEMIA [None]
